FAERS Safety Report 10745864 (Version 1)
Quarter: 2015Q1

REPORT INFORMATION
  Report Type: Spontaneous
  Country: US (occurrence: None)
  Receive Date: 20150127
  Receipt Date: 20150127
  Transmission Date: 20150721
  Serious: Yes (Other)
  Sender: FDA-Public Use
  Company Number: None

PATIENT
  Age: 66 Year
  Sex: Male
  Weight: 90.9 kg

DRUGS (16)
  1. AVASTIN [Suspect]
     Active Substance: BEVACIZUMAB
     Indication: NON-SMALL CELL LUNG CANCER STAGE IV
     Dosage: Q 3WEEKS
     Route: 042
  2. ERLOTINIB [Suspect]
     Active Substance: ERLOTINIB
     Indication: NON-SMALL CELL LUNG CANCER STAGE IV
     Route: 048
  3. TOPROL XL [Concomitant]
     Active Substance: METOPROLOL SUCCINATE
  4. XGEVA [Concomitant]
     Active Substance: DENOSUMAB
  5. REGENECARE [Concomitant]
  6. SIMCASTATIN [Concomitant]
  7. VALIUM [Concomitant]
     Active Substance: DIAZEPAM
  8. PHOS-NAK [Concomitant]
  9. CYMBALTA [Concomitant]
     Active Substance: DULOXETINE HYDROCHLORIDE
  10. AMBIEN [Concomitant]
     Active Substance: ZOLPIDEM TARTRATE
  11. CLINDAMYCIN [Concomitant]
     Active Substance: CLINDAMYCIN\CLINDAMYCIN PHOSPHATE
  12. GABAPENTIN. [Concomitant]
     Active Substance: GABAPENTIN
  13. TRAMINCELONE [Concomitant]
  14. RYTHMOL [Concomitant]
     Active Substance: PROPAFENONE HYDROCHLORIDE
  15. HYDROCORTISONE. [Concomitant]
     Active Substance: HYDROCORTISONE
  16. PRILOSEC [Concomitant]
     Active Substance: OMEPRAZOLE MAGNESIUM

REACTIONS (2)
  - Rash [None]
  - Eczema [None]

NARRATIVE: CASE EVENT DATE: 20141222
